FAERS Safety Report 15314276 (Version 3)
Quarter: 2018Q4

REPORT INFORMATION
  Report Type: Spontaneous
  Country: US (occurrence: US)
  Receive Date: 20180824
  Receipt Date: 20181116
  Transmission Date: 20190204
  Serious: Yes (Life-Threatening)
  Sender: FDA-Public Use
  Company Number: US-PFIZER INC-2018336260

PATIENT
  Age: 62 Year
  Sex: Male
  Weight: 98.88 kg

DRUGS (5)
  1. CHANTIX [Suspect]
     Active Substance: VARENICLINE TARTRATE
     Dosage: 1 MG TABLET TWICE A DAY
     Route: 048
     Dates: end: 20180819
  2. CHANTIX [Suspect]
     Active Substance: VARENICLINE TARTRATE
     Dosage: UNK
     Dates: start: 20180807, end: 20180820
  3. INSULIN GLARGINE [Concomitant]
     Active Substance: INSULIN GLARGINE
     Dosage: 70 IU, DAILY
     Dates: start: 2011
  4. CHANTIX [Suspect]
     Active Substance: VARENICLINE TARTRATE
     Indication: SMOKING CESSATION THERAPY
     Dosage: 0.5 MG TABLET ONCE A DAY
     Route: 048
     Dates: start: 201808
  5. PERCOCET [OXYCODONE HYDROCHLORIDE;PARACETAMOL] [Concomitant]
     Dosage: 10 MG, DAILY
     Dates: start: 2012

REACTIONS (19)
  - Dizziness postural [Not Recovered/Not Resolved]
  - Anxiety [Recovered/Resolved]
  - Muscle injury [Unknown]
  - Drug hypersensitivity [Unknown]
  - Insomnia [Unknown]
  - Paraesthesia [Unknown]
  - Myalgia [Unknown]
  - Chest discomfort [Unknown]
  - Anaphylactic shock [Unknown]
  - Lung disorder [Not Recovered/Not Resolved]
  - Balance disorder [Recovered/Resolved]
  - Dyspnoea [Recovered/Resolved]
  - Panic attack [Unknown]
  - Feeling abnormal [Recovered/Resolved]
  - Musculoskeletal stiffness [Recovering/Resolving]
  - Sensory loss [Not Recovered/Not Resolved]
  - Feeling jittery [Recovered/Resolved]
  - Peripheral coldness [Not Recovered/Not Resolved]
  - Fatigue [Unknown]

NARRATIVE: CASE EVENT DATE: 20180807
